FAERS Safety Report 17041247 (Version 1)
Quarter: 2019Q4

REPORT INFORMATION
  Report Type: Report from Study
  Country: US (occurrence: US)
  Receive Date: 20191118
  Receipt Date: 20191118
  Transmission Date: 20200122
  Serious: Yes (Hospitalization, Other)
  Sender: FDA-Public Use
  Company Number: US-AUROBINDO-AUR-APL-2019-072184

PATIENT
  Age: 69 Year
  Sex: Male

DRUGS (10)
  1. OXALIPLATIN. [Suspect]
     Active Substance: OXALIPLATIN
     Indication: ADENOCARCINOMA OF COLON
     Dosage: 85 MILLIGRAM/SQ. METER (OVER 2 HOURS)
     Route: 042
  2. ISOSORBIDE DINITRATE. [Concomitant]
     Active Substance: ISOSORBIDE DINITRATE
     Indication: ARTERIOSPASM CORONARY
     Dosage: 10 MILLIGRAM, 3 TIMES A DAY
     Route: 065
  3. NIFEDIPINE. [Concomitant]
     Active Substance: NIFEDIPINE
     Indication: ARTERIOSPASM CORONARY
     Dosage: 30 MILLIGRAM, DAILY (EXTENDED RELEASE)
     Route: 048
  4. 5-FU [Suspect]
     Active Substance: FLUOROURACIL
     Indication: ADENOCARCINOMA OF COLON
     Dosage: 1200 MILLIGRAM/SQ. METER, TWO TIMES A DAY
     Route: 065
  5. 5-FU [Suspect]
     Active Substance: FLUOROURACIL
     Dosage: 1800 MILLIGRAM/SQ. METER, CYCLICAL
     Route: 042
  6. 5-FU [Suspect]
     Active Substance: FLUOROURACIL
     Dosage: 1200 MILLIGRAM/SQ. METER, CYCLICAL
     Route: 042
  7. OXALIPLATIN. [Suspect]
     Active Substance: OXALIPLATIN
     Dosage: 65 MILLIGRAM/SQ. METER
     Route: 042
  8. LEUCOVORIN. [Concomitant]
     Active Substance: LEUCOVORIN
     Indication: PRODUCT USED FOR UNKNOWN INDICATION
     Dosage: 400 MILLIGRAM/SQ. METER (OVER 2 HOURS)
     Route: 042
  9. 5-FU [Suspect]
     Active Substance: FLUOROURACIL
     Dosage: 1200 MILLIGRAM/SQ. METER, CYCLICAL (OVER 46 HOURS0
     Route: 042
  10. CAPECITABINE. [Concomitant]
     Active Substance: CAPECITABINE
     Indication: PRODUCT USED FOR UNKNOWN INDICATION
     Dosage: 310 MILLIGRAM/SQ. METER
     Route: 048

REACTIONS (9)
  - Hypoxia [Unknown]
  - Nausea [Unknown]
  - Rhinorrhoea [Unknown]
  - Drug hypersensitivity [Unknown]
  - Headache [Unknown]
  - Arteriospasm coronary [Unknown]
  - Tachycardia [Unknown]
  - Neutropenia [Unknown]
  - Pyrexia [Unknown]
